FAERS Safety Report 8050869-7 (Version None)
Quarter: 2012Q1

REPORT INFORMATION
  Report Type: 
  Country: None (occurrence: None)
  Receive Date: 20120117
  Receipt Date: 20120104
  Transmission Date: 20120608
  Serious: Yes (Hospitalization, Other)
  Sender: FDA-Public Use
  Company Number: PHHY2012TW001037

PATIENT
  Sex: Male
  Weight: 65 kg

DRUGS (6)
  1. ZOLEDRONIC ACID [Suspect]
     Dosage: 3.5 MG, QMO
     Route: 042
     Dates: start: 20100312, end: 20110930
  2. LEUPROLIDE ACETATE [Concomitant]
     Indication: PROSTATE CANCER
     Dosage: 3.75 MG, UNK
     Dates: start: 20100205
  3. ALFUZOSIN HCL [Concomitant]
     Indication: BENIGN PROSTATIC HYPERPLASIA
     Dosage: 10 MG, UNK
     Dates: start: 20091218
  4. RAMIPRIL [Concomitant]
     Indication: HYPERTENSION
     Dosage: 1.25 MG, UNK
     Dates: start: 20110425
  5. ASPIRIN [Concomitant]
     Indication: PROPHYLAXIS
     Dosage: 100 MG, UNK
     Dates: start: 20061109
  6. BISOPROLOL FUMARATE [Concomitant]
     Indication: HYPERTENSION
     Dosage: 0.625 MG, UNK
     Dates: start: 20070613

REACTIONS (5)
  - OSTEONECROSIS OF JAW [None]
  - NEOPLASM MALIGNANT [None]
  - TOOTH DISORDER [None]
  - OSTEOMYELITIS [None]
  - NEOPLASM PROGRESSION [None]
